FAERS Safety Report 19181770 (Version 3)
Quarter: 2021Q2

REPORT INFORMATION
  Report Type: Other
  Country: MX (occurrence: MX)
  Receive Date: 20210426
  Receipt Date: 20210510
  Transmission Date: 20210717
  Serious: Yes (Death, Other)
  Sender: FDA-Public Use
  Company Number: MX-ROCHE-2779140

PATIENT
  Age: 35 Year
  Sex: Female
  Weight: 66 kg

DRUGS (11)
  1. HERCEPTIN [Suspect]
     Active Substance: TRASTUZUMAB
     Route: 042
     Dates: start: 2019, end: 202001
  2. PERJETA [Suspect]
     Active Substance: PERTUZUMAB
     Route: 042
     Dates: start: 20210204
  3. BEVACIZUMAB. [Suspect]
     Active Substance: BEVACIZUMAB
     Indication: BREAST CANCER METASTATIC
     Dosage: 6 CYCLES
     Route: 065
     Dates: end: 202001
  4. DOCETAXEL. [Concomitant]
     Active Substance: DOCETAXEL
     Indication: BREAST CANCER METASTATIC
     Dosage: 6 CYCLES
  5. CAPECITABINE. [Suspect]
     Active Substance: CAPECITABINE
     Indication: BREAST CANCER METASTATIC
     Dosage: DURING ONE YEAR
     Route: 048
     Dates: end: 202001
  6. PERJETA [Suspect]
     Active Substance: PERTUZUMAB
     Indication: BREAST CANCER METASTATIC
     Dosage: FREQUENCY WAS NOT REPORTED
     Route: 042
     Dates: start: 20210204
  7. HERCEPTIN [Suspect]
     Active Substance: TRASTUZUMAB
     Indication: BREAST CANCER METASTATIC
     Dosage: FREQUENCY WAS NOT REPORTED
     Route: 042
     Dates: start: 20210204
  8. PERJETA [Suspect]
     Active Substance: PERTUZUMAB
     Route: 042
     Dates: start: 2019, end: 202001
  9. HERCEPTIN [Suspect]
     Active Substance: TRASTUZUMAB
     Dosage: DOSE WAS UNKNOWN
     Route: 042
     Dates: start: 2019
  10. HERCEPTIN [Suspect]
     Active Substance: TRASTUZUMAB
     Route: 042
     Dates: start: 20210204
  11. PERJETA [Suspect]
     Active Substance: PERTUZUMAB
     Dosage: DOSE WAS UNKNOWN
     Route: 042
     Dates: start: 2019

REACTIONS (6)
  - Metastases to liver [Unknown]
  - Pain [Unknown]
  - Hepatitis [Unknown]
  - Metastases to lung [Unknown]
  - Death [Fatal]
  - Dermatitis [Unknown]

NARRATIVE: CASE EVENT DATE: 20210113
